FAERS Safety Report 5069032-7 (Version None)
Quarter: 2006Q3

REPORT INFORMATION
  Report Type: 
  Country: None (occurrence: None)
  Receive Date: 20060728
  Receipt Date: 20060710
  Transmission Date: 20061208
  Serious: Yes (Hospitalization)
  Sender: FDA-Public Use
  Company Number: BE200607001412

PATIENT
  Sex: Male

DRUGS (1)
  1. XIGRIS [Suspect]
     Indication: SEPSIS
     Dosage: 24 UG, INTRAVENOUS
     Route: 042
     Dates: start: 20060709, end: 20060710

REACTIONS (1)
  - THROMBOCYTOPENIA [None]
